FAERS Safety Report 9609302 (Version 1)
Quarter: 2013Q4

REPORT INFORMATION
  Report Type: Spontaneous
  Country: US (occurrence: US)
  Receive Date: 20131009
  Receipt Date: 20131009
  Transmission Date: 20140711
  Serious: No
  Sender: FDA-Public Use
  Company Number: US-BAYER-2013-121138

PATIENT
  Sex: Male

DRUGS (4)
  1. STAXYN (FDT/ODT) [Suspect]
     Indication: ERECTILE DYSFUNCTION
     Dosage: 10 MG, UNK
     Route: 048
     Dates: start: 20131002, end: 20131002
  2. LITHIUM [Concomitant]
  3. PROSCAR [Concomitant]
  4. PLAVIX [Concomitant]

REACTIONS (1)
  - Drug ineffective [Unknown]
